FAERS Safety Report 8399154 (Version 2)
Quarter: 2012Q4

REPORT INFORMATION
  Report Type: Spontaneous
  Country: CA (occurrence: None)
  Receive Date: 20120123
  Receipt Date: 20121212
  Transmission Date: 20130627
  Serious: Yes (Death, Life-Threatening, Hospitalization, Other)
  Sender: FDA-Public Use
  Company Number: 2012030755

PATIENT
  Age: 79 Year
  Sex: Female

DRUGS (27)
  1. PRIVIGEN [Suspect]
     Indication: IDIOPATHIC THROMBOCYTOPENIC PURPURA
     Dosage: 135 G, 2.7 G/KG WITHIN LESS THAN 24 HOURS, INTRAVENOUS (NOT OTHERWISE SPECIFIED)
     Route: 042
     Dates: start: 20111206
  2. PRIVIGEN [Suspect]
     Indication: IDIOPATHIC THROMBOCYTOPENIC PURPURA
  3. PRIVIGEN [Suspect]
     Indication: IDIOPATHIC THROMBOCYTOPENIC PURPURA
  4. PRIVIGEN [Suspect]
     Indication: IDIOPATHIC THROMBOCYTOPENIC PURPURA
  5. ALBUMIN HUMAN [Suspect]
     Dosage: INTRAVENOUS (NOT OTHERWISE SPECIFIED)
     Route: 042
     Dates: start: 20111219
  6. ALBUMIN HUMAN [Suspect]
     Dosage: INTRAVENOUS (NOT OTHERWISE SPECIFIED)
     Route: 042
     Dates: start: 20111211
  7. ALBUMIN HUMAN [Suspect]
     Dosage: INTRAVENOUS (NOT OTHERWISE SPECIFIED)
     Route: 042
     Dates: start: 20111212
  8. ALBUMIN HUMAN [Suspect]
     Dosage: INTRAVENOUS (NOT OTHERWISE SPECIFIED)
     Route: 042
     Dates: start: 20111213
  9. ALBUMIN HUMAN [Suspect]
     Dosage: INTRAVENOUS (NOT OTHERWISE SPECIFIED)
     Route: 042
     Dates: start: 20111216
  10. ALBUMIN HUMAN [Suspect]
     Dosage: INTRAVENOUS (NOT OTHERWISE SPECIFIED)
     Route: 042
     Dates: start: 20111216
  11. ALBUMIN HUMAN [Suspect]
     Dosage: INTRAVENOUS (NOT OTHERWISE SPECIFIED)
     Route: 042
     Dates: start: 20111217
  12. ALBUMIN HUMAN [Suspect]
     Dosage: INTRAVENOUS (NOT OTHERWISE SPECIFIED)
     Route: 042
     Dates: start: 20111219
  13. AMPICILLIN [Concomitant]
  14. CIPROFLOXACIN [Concomitant]
  15. VASOPRESSIN [Concomitant]
  16. DOPAMINE HYDROCHLORIDE [Concomitant]
  17. FENTANYL [Concomitant]
  18. METRONIDAZOLE [Concomitant]
  19. HALOPERIDOL [Concomitant]
  20. HYDRALAZINE HYDROCHLORIDE [Concomitant]
  21. MAGNESIUM SULFATE [Concomitant]
  22. METOCLOPRAMIDE [Concomitant]
  23. POTASSIUM CHLORIDE [Concomitant]
  24. PANTOPRAZOLE [Concomitant]
  25. SOLU-MEDROL [Concomitant]
  26. MIDAZOLAM (MIDAZOLAM) [Concomitant]
  27. MULTIVITAMINS (MULTIVITAMINS) [Concomitant]

REACTIONS (15)
  - Haptoglobin abnormal [None]
  - Condition aggravated [None]
  - Polychromasia [None]
  - Autoimmune thrombocytopenia [None]
  - Intestinal ischaemia [None]
  - Hepatic ischaemia [None]
  - Renal ischaemia [None]
  - Hypoperfusion [None]
  - Respiratory failure [None]
  - Ischaemia [None]
  - Haemolytic anaemia [None]
  - Haemoglobin decreased [None]
  - Pancreatic disorder [None]
  - Spleen disorder [None]
  - Transfusion reaction [None]
